FAERS Safety Report 24441200 (Version 1)
Quarter: 2024Q4

REPORT INFORMATION
  Report Type: Spontaneous
  Country: PL (occurrence: PL)
  Receive Date: 20241016
  Receipt Date: 20241016
  Transmission Date: 20250115
  Serious: Yes (Other)
  Sender: SANDOZ
  Company Number: PL-SUN PHARMACEUTICAL INDUSTRIES LTD-2024RR-472274

PATIENT
  Age: 52 Year
  Sex: Male

DRUGS (6)
  1. CARBOPLATIN [Suspect]
     Active Substance: CARBOPLATIN
     Indication: Chemotherapy
     Dosage: UNK
     Route: 065
     Dates: start: 202204
  2. DOCETAXEL [Suspect]
     Active Substance: DOCETAXEL
     Indication: Chemotherapy
     Dosage: UNK
     Route: 065
     Dates: start: 202402, end: 202405
  3. NINTEDANIB [Suspect]
     Active Substance: NINTEDANIB
     Indication: Chemotherapy
     Dosage: UNK
     Route: 065
     Dates: start: 202402, end: 202405
  4. PEMETREXED [Suspect]
     Active Substance: PEMETREXED
     Indication: Chemotherapy
     Dosage: UNK
     Route: 065
     Dates: start: 202204
  5. PEMBROLIZUMAB [Suspect]
     Active Substance: PEMBROLIZUMAB
     Indication: Chemotherapy
     Dosage: UNK
     Route: 065
     Dates: start: 202204, end: 20231227
  6. ZOLEDRONIC ACID [Suspect]
     Active Substance: ZOLEDRONIC ACID
     Indication: Chemotherapy
     Dosage: UNK
     Route: 065
     Dates: start: 202202

REACTIONS (2)
  - Renal impairment [Unknown]
  - Therapeutic product effect incomplete [Unknown]
